FAERS Safety Report 8839875 (Version 3)
Quarter: 2013Q1

REPORT INFORMATION
  Report Type: Report from Study
  Country: JP (occurrence: JP)
  Receive Date: 20121015
  Receipt Date: 20130215
  Transmission Date: 20140127
  Serious: Yes (Hospitalization, Other)
  Sender: FDA-Public Use
  Company Number: JP-009507513-2012SP029622

PATIENT
  Age: 68 Year
  Sex: Male
  Weight: 65 kg

DRUGS (24)
  1. PEGINTRON [Suspect]
     Indication: CHRONIC HEPATITIS C
     Dosage: 100 MICROGRAM, QW
     Route: 058
     Dates: start: 20120322
  2. PEGINTRON [Suspect]
     Dosage: 1.5 MICROGRAM PER KILOGRAM, QW
     Route: 058
     Dates: end: 20120905
  3. REBETOL [Suspect]
     Indication: CHRONIC HEPATITIS C
     Dosage: 800 MG, QD
     Route: 048
     Dates: start: 20120322, end: 20120417
  4. REBETOL [Suspect]
     Dosage: 600 MG, QD
     Route: 048
     Dates: start: 20120418, end: 20120502
  5. REBETOL [Suspect]
     Dosage: 400 MG, QD
     Route: 048
     Dates: start: 20120503
  6. REBETOL [Suspect]
     Dosage: 600 MG, QD
     Route: 048
     Dates: end: 20120509
  7. REBETOL [Suspect]
     Dosage: 400 MG, QD
     Route: 048
     Dates: start: 20120511, end: 20120905
  8. TELAVIC [Suspect]
     Indication: CHRONIC HEPATITIS C
     Dosage: 2250 MG, QD
     Route: 048
     Dates: start: 20120322, end: 20120417
  9. TELAVIC [Suspect]
     Dosage: 1500 MG, QD
     Route: 048
     Dates: start: 20120418, end: 20120502
  10. TELAVIC [Suspect]
     Dosage: 1000 MG, QD
     Route: 048
     Dates: start: 20120503
  11. TELAVIC [Suspect]
     Dosage: 1500 MG, QD
     Route: 048
     Dates: end: 20120509
  12. TELAVIC [Suspect]
     Dosage: 1000 MG, QD
     Route: 048
     Dates: start: 20120511, end: 20120522
  13. TELAVIC [Suspect]
     Dosage: UNK
  14. MUCOSTA [Concomitant]
     Indication: PROPHYLAXIS
     Dosage: 300 MG, QD
     Route: 048
     Dates: start: 20120327, end: 20120509
  15. MARZULENE-S [Concomitant]
     Indication: PROPHYLAXIS
     Dosage: FORMULATION : GRA
     Route: 048
     Dates: start: 20120327, end: 20120509
  16. DIOVAN [Concomitant]
     Indication: HYPERTENSION
     Dosage: 80 MG, QD
     Route: 048
     Dates: start: 20120327
  17. ADALAT CR [Concomitant]
     Indication: HYPERTENSION
     Dosage: 20 MG, QD
     Route: 048
     Dates: start: 20120327, end: 20120418
  18. NEXIUM [Concomitant]
     Indication: GASTROOESOPHAGEAL REFLUX DISEASE
     Dosage: 20 MG, QD
     Route: 048
     Dates: start: 20120327, end: 20120613
  19. AZUNOL (SODIUM GUALENATE) [Concomitant]
     Dosage: FORMULATION : MWH, DOSE :DAILY DOSE UNKNOWN
     Route: 065
     Dates: start: 20120425, end: 20120503
  20. ACETAMINOPHEN (+) CAFFEINE (+) PROMETHAZINE METHYLENEDISALICYLATE (+) [Concomitant]
     Dosage: DOSE : 3 PACKS / DAY
     Route: 065
     Dates: start: 20120323, end: 20120327
  21. BISOLVON [Concomitant]
     Dosage: 12 MG, QD
     Route: 048
     Dates: start: 20120323, end: 20120327
  22. ISODINE [Concomitant]
     Dosage: 7PERCENT ISODINE GARGLE SOLUTION 1 BOTTLE
     Route: 065
     Dates: start: 20120323, end: 20120327
  23. EURAX-H [Concomitant]
     Dosage: DOSE : 1 TUBE 5 GM (AS NEEDED APPLICATION)
     Route: 061
     Dates: start: 20120325
  24. ALLELOCK [Concomitant]
     Dosage: 2 DF, QD
     Route: 048
     Dates: start: 20120325

REACTIONS (6)
  - Haemolytic anaemia [Recovered/Resolved]
  - Dysgeusia [Recovering/Resolving]
  - White blood cell count decreased [Recovered/Resolved]
  - Haemoglobin decreased [Recovered/Resolved]
  - Malaise [Recovering/Resolving]
  - Decreased appetite [Recovering/Resolving]
